FAERS Safety Report 4722780-8 (Version None)
Quarter: 2005Q3

REPORT INFORMATION
  Report Type: 
  Country: None (occurrence: None)
  Receive Date: 20050722
  Receipt Date: 20050718
  Transmission Date: 20060218
  Serious: Yes (Hospitalization)
  Sender: FDA-Public Use
  Company Number: EMADSS2003003363

PATIENT
  Sex: Female
  Weight: 13.8 kg

DRUGS (3)
  1. IMODIUM [Suspect]
     Indication: VOMITING
     Route: 048
     Dates: start: 20030206, end: 20030206
  2. IMODIUM [Suspect]
     Indication: DIARRHOEA
     Route: 048
     Dates: start: 20030206, end: 20030206
  3. IMODIUM [Suspect]
     Indication: GASTROENTERITIS
     Route: 048
     Dates: start: 20030206, end: 20030206

REACTIONS (4)
  - EPILEPSY [None]
  - LOSS OF CONSCIOUSNESS [None]
  - PALLOR [None]
  - POST LUMBAR PUNCTURE SYNDROME [None]
